FAERS Safety Report 17432240 (Version 3)
Quarter: 2020Q4

REPORT INFORMATION
  Report Type: Spontaneous
  Country: US (occurrence: US)
  Receive Date: 20200218
  Receipt Date: 20201009
  Transmission Date: 20210113
  Serious: No
  Sender: FDA-Public Use
  Company Number: US-SA-2020SA038883

PATIENT

DRUGS (4)
  1. IBUPROFEN. [Concomitant]
     Active Substance: IBUPROFEN
  2. DUPIXENT [Suspect]
     Active Substance: DUPILUMAB
     Indication: NASAL POLYPS
     Dosage: 300 MG, QOW
     Route: 058
     Dates: start: 20191120
  3. TYLENOL [Concomitant]
     Active Substance: ACETAMINOPHEN
  4. PERCOCET [Concomitant]
     Active Substance: ACETAMINOPHEN\OXYCODONE HYDROCHLORIDE

REACTIONS (3)
  - Pruritus [Not Recovered/Not Resolved]
  - Injection site pain [Unknown]
  - Ankle operation [Not Recovered/Not Resolved]

NARRATIVE: CASE EVENT DATE: 20200207
